FAERS Safety Report 9651808 (Version 1)
Quarter: 2013Q4

REPORT INFORMATION
  Report Type: Spontaneous
  Country: US (occurrence: None)
  Receive Date: 20131028
  Receipt Date: 20131028
  Transmission Date: 20140711
  Serious: Yes (Other)
  Sender: FDA-Public Use
  Company Number: None

PATIENT
  Age: 78 Year
  Sex: Female
  Weight: 116 kg

DRUGS (2)
  1. PROLIA [Suspect]
     Indication: OSTEOPOROSIS
     Dosage: 1 INJECTION
  2. PROLIA [Suspect]
     Indication: FRACTURE
     Dosage: 1 INJECTION

REACTIONS (2)
  - Temporal arteritis [None]
  - Polymyalgia rheumatica [None]
